FAERS Safety Report 23196293 (Version 5)
Quarter: 2024Q1

REPORT INFORMATION
  Report Type: Report from Study
  Country: AT (occurrence: AT)
  Receive Date: 20231117
  Receipt Date: 20240307
  Transmission Date: 20240410
  Serious: Yes (Death, Life-Threatening, Hospitalization, Other)
  Sender: FDA-Public Use
  Company Number: AT-002147023-NVSC2021AT196862

PATIENT
  Sex: Female
  Weight: 70 kg

DRUGS (2)
  1. KISQALI [Suspect]
     Active Substance: RIBOCICLIB
     Indication: Hormone receptor positive HER2 negative breast cancer
     Dosage: 600 MG, QD
     Route: 048
     Dates: start: 20210203
  2. KISQALI [Suspect]
     Active Substance: RIBOCICLIB
     Dosage: 400 MG, QD
     Route: 048
     Dates: start: 20230401, end: 20230704

REACTIONS (21)
  - Sepsis [Fatal]
  - Pancytopenia [Unknown]
  - Neutropenia [Fatal]
  - Thrombocytopenia [Unknown]
  - Leukopenia [Unknown]
  - Chronic cutaneous lupus erythematosus [Unknown]
  - Neutrophil count decreased [Recovered/Resolved]
  - Cardiac failure [Unknown]
  - Influenza like illness [Not Recovered/Not Resolved]
  - Chest discomfort [Recovered/Resolved]
  - Pain in extremity [Not Recovered/Not Resolved]
  - Fatigue [Not Recovered/Not Resolved]
  - Back pain [Not Recovered/Not Resolved]
  - Rash [Recovered/Resolved]
  - Lacrimation increased [Not Recovered/Not Resolved]
  - Tachycardia [Not Recovered/Not Resolved]
  - Arthralgia [Not Recovered/Not Resolved]
  - Stasis dermatitis [Not Recovered/Not Resolved]
  - Asthenia [Unknown]
  - Febrile infection [Unknown]
  - Herpes zoster [Unknown]

NARRATIVE: CASE EVENT DATE: 20210615
